FAERS Safety Report 21183349 (Version 2)
Quarter: 2022Q3

REPORT INFORMATION
  Report Type: Other
  Country: SK (occurrence: None)
  Receive Date: 20220808
  Receipt Date: 20220816
  Transmission Date: 20221026
  Serious: Yes (Death, Other)
  Sender: FDA-Public Use
  Company Number: SK-ROCHE-3153775

PATIENT
  Age: 74 Year
  Sex: Female

DRUGS (1)
  1. CAPECITABINE [Suspect]
     Active Substance: CAPECITABINE
     Indication: Breast cancer
     Route: 048

REACTIONS (9)
  - Disease progression [Unknown]
  - Metastases to lung [Unknown]
  - Metastases to pleura [Unknown]
  - Metastases to liver [Unknown]
  - Metastases to bone [Unknown]
  - Lymphadenopathy [Unknown]
  - Respiratory failure [Fatal]
  - COVID-19 [Fatal]
  - Drug ineffective [Unknown]
